FAERS Safety Report 16595568 (Version 2)
Quarter: 2019Q3

REPORT INFORMATION
  Report Type: Spontaneous
  Country: US (occurrence: US)
  Receive Date: 20190719
  Receipt Date: 20190725
  Transmission Date: 20191004
  Serious: Yes (Other)
  Sender: FDA-Public Use
  Company Number: US-CIPLA LTD.-2019US05068

PATIENT

DRUGS (16)
  1. OXALIPLATIN. [Suspect]
     Active Substance: OXALIPLATIN
     Indication: METASTASES TO LIVER
     Dosage: UNK, FOLFOX
     Route: 065
  2. 5 FU [Suspect]
     Active Substance: FLUOROURACIL
     Indication: METASTASES TO LIVER
     Dosage: UNK, FOLFIRI, MULTIAGENT CHEMOTHERAPY, 24 CYCLES
     Route: 065
  3. 5 FU [Suspect]
     Active Substance: FLUOROURACIL
     Dosage: UNK, FOLFOX
     Route: 065
  4. OXALIPLATIN. [Suspect]
     Active Substance: OXALIPLATIN
     Indication: ADENOCARCINOMA OF COLON
     Dosage: UNK, FOLFOX, 12 CYCLES, ADJUVANT CHEMOTHERAPY
     Route: 065
  5. FOLINIC ACID [Suspect]
     Active Substance: LEUCOVORIN
     Dosage: UNK, FOLFOX
     Route: 065
  6. IRINOTECAN [Concomitant]
     Active Substance: IRINOTECAN
     Indication: METASTASES TO LIVER
  7. XELODA [Suspect]
     Active Substance: CAPECITABINE
     Indication: METASTASES TO LIVER
     Dosage: UNK, MAINTENANCE THERAPY
     Route: 065
  8. BEVACIZUMAB. [Concomitant]
     Active Substance: BEVACIZUMAB
     Indication: ADENOCARCINOMA OF COLON
     Dosage: UNK, SIX CYCLES
     Route: 065
  9. CETUXIMAB. [Concomitant]
     Active Substance: CETUXIMAB
     Indication: METASTASES TO LIVER
     Dosage: UNK, 24 CYCLES
     Route: 065
  10. FOLINIC ACID [Suspect]
     Active Substance: LEUCOVORIN
     Indication: ADENOCARCINOMA OF COLON
     Dosage: UNK, FOLFOX, 12 CYCLES, ADJUVANT CHEMOTHERAPY
     Route: 065
  11. XELODA [Suspect]
     Active Substance: CAPECITABINE
     Indication: ADENOCARCINOMA OF COLON
     Dosage: UNK, SIX CYCLES
     Route: 065
  12. CETUXIMAB. [Concomitant]
     Active Substance: CETUXIMAB
     Indication: ADENOCARCINOMA OF COLON
  13. 5 FU [Suspect]
     Active Substance: FLUOROURACIL
     Indication: ADENOCARCINOMA OF COLON
     Dosage: UNK, FOLFOX, 12 CYCLES, ADJUVANT CHEMOTHERAPY
     Route: 065
  14. BEVACIZUMAB. [Concomitant]
     Active Substance: BEVACIZUMAB
     Indication: METASTASES TO LIVER
     Dosage: UNK, MAINTENANCE THERAPY
     Route: 065
  15. IRINOTECAN [Concomitant]
     Active Substance: IRINOTECAN
     Indication: ADENOCARCINOMA OF COLON
     Dosage: UNK, FOLFIRI, 24 CYCLES
     Route: 065
  16. FOLINIC ACID [Suspect]
     Active Substance: LEUCOVORIN
     Indication: METASTASES TO LIVER
     Dosage: UNK, FOLFIRI, MULTIAGENT CHEMOTHERAPY, 24 CYCLES
     Route: 065

REACTIONS (2)
  - Granulomatous dermatitis [Unknown]
  - Sarcoidosis [Unknown]
